FAERS Safety Report 5126620-7 (Version None)
Quarter: 2006Q4

REPORT INFORMATION
  Report Type: 
  Country: None (occurrence: None)
  Receive Date: 20061013
  Receipt Date: 20061002
  Transmission Date: 20070319
  Serious: Yes (Hospitalization)
  Sender: FDA-Public Use
  Company Number: PHRM2006FR02766

PATIENT
  Age: 80 Year
  Sex: Male

DRUGS (6)
  1. COMTAN [Suspect]
     Dosage: 1200 MG/DAY
     Route: 048
     Dates: end: 20060826
  2. MODOPAR [Suspect]
     Dosage: 225/900 MG/DAY
     Route: 048
  3. LASIX [Concomitant]
     Dosage: 40 MG/DAY
     Route: 048
  4. ASPIRIN [Concomitant]
     Dosage: 75 MG/DAY
     Route: 048
  5. POTASSIUM CHLORIDE [Concomitant]
     Dosage: 600 MG, QD
     Route: 048
  6. IKOREL [Concomitant]
     Dosage: 10 MG, QD
     Route: 048

REACTIONS (6)
  - ANOREXIA [None]
  - CONFUSIONAL STATE [None]
  - DISORIENTATION [None]
  - DYSKINESIA [None]
  - FALL [None]
  - MUTISM [None]
